FAERS Safety Report 8109888-4 (Version None)
Quarter: 2012Q1

REPORT INFORMATION
  Report Type: 
  Country: None (occurrence: None)
  Receive Date: 20120202
  Receipt Date: 20120120
  Transmission Date: 20120608
  Serious: No
  Sender: FDA-Public Use
  Company Number: US-AMGEN-USASP2012000482

PATIENT
  Sex: Male

DRUGS (1)
  1. ENBREL [Suspect]
     Indication: RHEUMATOID ARTHRITIS
     Dosage: 50 MG, QWK
     Dates: start: 20041223

REACTIONS (9)
  - BACK PAIN [None]
  - POLLAKIURIA [None]
  - MUSCULAR WEAKNESS [None]
  - MUSCLE SPASMS [None]
  - FATIGUE [None]
  - ABDOMINAL MASS [None]
  - ABDOMINAL PAIN [None]
  - PAIN [None]
  - TREMOR [None]
